FAERS Safety Report 17655820 (Version 1)
Quarter: 2020Q2

REPORT INFORMATION
  Report Type: Report from Study
  Country: IN (occurrence: IN)
  Receive Date: 20200410
  Receipt Date: 20200410
  Transmission Date: 20200713
  Serious: Yes (Other)
  Sender: FDA-Public Use
  Company Number: IN-ROCHE-2580038

PATIENT
  Sex: Male

DRUGS (1)
  1. ACCENTRIX [Suspect]
     Active Substance: RANIBIZUMAB
     Indication: PRODUCT USED FOR UNKNOWN INDICATION
     Route: 047
     Dates: start: 20200320

REACTIONS (2)
  - Eye pain [Unknown]
  - Blindness [Unknown]

NARRATIVE: CASE EVENT DATE: 20200323
